FAERS Safety Report 7948835-2 (Version None)
Quarter: 2011Q4

REPORT INFORMATION
  Report Type: 
  Country: None (occurrence: None)
  Receive Date: 20111130
  Receipt Date: 20111117
  Transmission Date: 20120403
  Serious: Yes (Other)
  Sender: FDA-Public Use
  Company Number: PHHY2011FR101323

PATIENT
  Sex: Female

DRUGS (10)
  1. ATENOLOL [Concomitant]
     Dosage: UNK UKN, UNK
  2. ASPIRIN [Concomitant]
     Dosage: UNK UKN, UNK
  3. TASIGNA [Suspect]
     Indication: CHRONIC MYELOID LEUKAEMIA
     Dosage: 400 MG, BID
  4. FLECAINIDE ACETATE [Concomitant]
     Dosage: UNK UKN, UNK
  5. LEVOTHYROXINE SODIUM [Concomitant]
     Dosage: UNK UKN, UNK
  6. REPAGLINIDE [Concomitant]
     Dosage: UNK UKN, UNK
  7. LANTUS [Concomitant]
     Dosage: UNK UKN, UNK
  8. GLUCOPHAGE [Concomitant]
     Dosage: UNK UKN, UNK
  9. VALSARTAN [Concomitant]
     Dosage: UNK UKN, UNK
  10. PANTOPRAZOLE SODIUM [Concomitant]
     Dosage: UNK UKN, UNK

REACTIONS (7)
  - VIRAL INFECTION [None]
  - PARAESTHESIA ORAL [None]
  - NAIL DISORDER [None]
  - HALLUCINATION, OLFACTORY [None]
  - ABDOMINAL PAIN [None]
  - ONYCHOCLASIS [None]
  - HYPOAESTHESIA ORAL [None]
